FAERS Safety Report 9222028 (Version 1)
Quarter: 2013Q2

REPORT INFORMATION
  Report Type: Spontaneous
  Country: US (occurrence: US)
  Receive Date: 20130410
  Receipt Date: 20130410
  Transmission Date: 20140414
  Serious: No
  Sender: FDA-Public Use
  Company Number: US-PFIZER INC-2013112524

PATIENT
  Sex: Male

DRUGS (2)
  1. XELJANZ [Suspect]
     Indication: RHEUMATOID ARTHRITIS
     Dosage: 10 MG, TWICE A DAY
  2. XELJANZ [Suspect]
     Dosage: 5 MG, ONCE A DAY
     Dates: end: 2013

REACTIONS (1)
  - Headache [Unknown]
